FAERS Safety Report 6432538-X (Version None)
Quarter: 2009Q4

REPORT INFORMATION
  Report Type: 
  Country: None (occurrence: None)
  Receive Date: 20091105
  Receipt Date: 20091029
  Transmission Date: 20100525
  Serious: Yes (Hospitalization, Other)
  Sender: FDA-Public Use
  Company Number: 200910026

PATIENT
  Age: 68 Year
  Sex: Male
  Weight: 104.3273 kg

DRUGS (2)
  1. TESTIM [Suspect]
     Indication: BLOOD TESTOSTERONE DECREASED
     Dosage: 50 MG, DAILY, TRANSDERMAL; 50 MG, DAILY, TRANSDERMAL
     Route: 062
     Dates: start: 20080101, end: 20090301
  2. TESTIM [Suspect]
     Indication: BLOOD TESTOSTERONE DECREASED
     Dosage: 50 MG, DAILY, TRANSDERMAL; 50 MG, DAILY, TRANSDERMAL
     Route: 062
     Dates: start: 20090601, end: 20090901

REACTIONS (15)
  - ALCOHOL USE [None]
  - BLOOD PRESSURE INCREASED [None]
  - DIZZINESS [None]
  - HOT FLUSH [None]
  - LIBIDO DECREASED [None]
  - LOSS OF LIBIDO [None]
  - LYMPH NODE PAIN [None]
  - LYMPHADENOPATHY [None]
  - MOOD ALTERED [None]
  - MUSCLE SPASMS [None]
  - MYALGIA [None]
  - PAIN IN EXTREMITY [None]
  - PALPITATIONS [None]
  - PROSTATE CANCER [None]
  - TENDON PAIN [None]
